FAERS Safety Report 5149169-4 (Version None)
Quarter: 2006Q4

REPORT INFORMATION
  Report Type: 
  Country: None (occurrence: None)
  Receive Date: 20061113
  Receipt Date: 20060822
  Transmission Date: 20070319
  Serious: No
  Sender: FDA-Public Use
  Company Number: US-GLAXOSMITHKLINE-A0617664A

PATIENT
  Age: 73 Year
  Sex: Male

DRUGS (4)
  1. COREG [Suspect]
     Dosage: 3.125MG TWICE PER DAY
     Route: 048
     Dates: start: 20051201
  2. VYTORIN [Concomitant]
  3. RYTHMOL [Concomitant]
  4. ALTACE [Concomitant]

REACTIONS (2)
  - DIZZINESS [None]
  - FATIGUE [None]
